FAERS Safety Report 10910466 (Version 1)
Quarter: 2015Q1

REPORT INFORMATION
  Report Type: Spontaneous
  Country: US (occurrence: US)
  Receive Date: 20150312
  Receipt Date: 20150312
  Transmission Date: 20150721
  Serious: No
  Sender: FDA-Public Use
  Company Number: US-ABBVIE-14P-163-1248742-00

PATIENT
  Age: 34 Year
  Sex: Female

DRUGS (2)
  1. DEPAKOTE [Suspect]
     Active Substance: DIVALPROEX SODIUM
     Indication: BIPOLAR DISORDER
  2. DEPAKOTE [Suspect]
     Active Substance: DIVALPROEX SODIUM
     Indication: ANXIETY
     Route: 048
     Dates: start: 2004

REACTIONS (3)
  - Anger [Recovered/Resolved]
  - Product quality issue [Unknown]
  - Mood altered [Recovered/Resolved]

NARRATIVE: CASE EVENT DATE: 20140609
